FAERS Safety Report 5014923-6 (Version None)
Quarter: 2006Q2

REPORT INFORMATION
  Report Type: 
  Country: None (occurrence: None)
  Receive Date: 20060531
  Receipt Date: 20060519
  Transmission Date: 20061013
  Serious: Yes (Hospitalization)
  Sender: FDA-Public Use
  Company Number: FR-ROCHE-448754

PATIENT
  Age: 40 Year
  Sex: Female

DRUGS (6)
  1. ROCEPHIN [Suspect]
     Indication: DRUG USE FOR UNKNOWN INDICATION
     Route: 030
     Dates: start: 20060408, end: 20060414
  2. SURBRONC [Suspect]
     Indication: DRUG USE FOR UNKNOWN INDICATION
     Route: 030
     Dates: start: 20060408
  3. OMIX [Concomitant]
     Indication: NEUROGENIC BLADDER
     Dates: end: 20060415
  4. NOLVADEX [Concomitant]
     Dosage: CHRONIC TREATMENT.
     Dates: start: 20040615
  5. ZOLOFT [Concomitant]
     Dosage: CHRONIC TREATMENT.
     Dates: start: 20040615
  6. PRAZEPAM [Concomitant]
     Dosage: CHRONIC TREATMENT.
     Dates: start: 20040615

REACTIONS (2)
  - BODY TEMPERATURE INCREASED [None]
  - URTICARIA [None]
